FAERS Safety Report 11092410 (Version 4)
Quarter: 2015Q2

REPORT INFORMATION
  Report Type: Spontaneous
  Country: PL (occurrence: PL)
  Receive Date: 20150506
  Receipt Date: 20150623
  Transmission Date: 20150821
  Serious: Yes (Hospitalization, Other)
  Sender: FDA-Public Use
  Company Number: PL-ROCHE-1569902

PATIENT
  Sex: Female
  Weight: 68 kg

DRUGS (4)
  1. IPILIMUMAB [Concomitant]
     Active Substance: IPILIMUMAB
  2. ZELBORAF [Suspect]
     Active Substance: VEMURAFENIB
     Route: 065
     Dates: start: 20140131, end: 20141020
  3. ZELBORAF [Suspect]
     Active Substance: VEMURAFENIB
     Route: 065
  4. ZELBORAF [Suspect]
     Active Substance: VEMURAFENIB
     Indication: MALIGNANT MELANOMA
     Route: 065
     Dates: start: 20131007

REACTIONS (13)
  - Myalgia [Unknown]
  - Dyspnoea [Unknown]
  - Cardiac disorder [Unknown]
  - Hyperkeratosis [Unknown]
  - Pain of skin [Unknown]
  - Arrhythmia [Unknown]
  - Photophobia [Unknown]
  - Arrhythmia supraventricular [Recovered/Resolved]
  - Rash pruritic [Unknown]
  - Dry skin [Unknown]
  - Erythema [Unknown]
  - Asthenia [Unknown]
  - Rash [Unknown]
